FAERS Safety Report 17816215 (Version 3)
Quarter: 2020Q4

REPORT INFORMATION
  Report Type: Spontaneous
  Country: US (occurrence: US)
  Receive Date: 20200522
  Receipt Date: 20201203
  Transmission Date: 20210113
  Serious: No
  Sender: FDA-Public Use
  Company Number: US-SA-2020SA132621

PATIENT

DRUGS (10)
  1. BUDESONIDE. [Concomitant]
     Active Substance: BUDESONIDE
     Dosage: UNK
     Route: 045
  2. FASENRA [Concomitant]
     Active Substance: BENRALIZUMAB
     Dosage: UNK
     Route: 065
  3. ALBUTEROL [SALBUTAMOL] [Concomitant]
     Active Substance: ALBUTEROL
     Dosage: UNK UNK, PRN,
     Route: 055
  4. WIXELA INHUB [Concomitant]
     Active Substance: FLUTICASONE PROPIONATE\SALMETEROL XINAFOATE
     Indication: ASTHMA
     Dosage: UNK
     Route: 055
  5. DUPIXENT [Suspect]
     Active Substance: DUPILUMAB
     Indication: NASAL POLYPS
     Dosage: 300 MG, QOW
     Route: 058
     Dates: start: 20200514
  6. LIOTHYRONINE [Concomitant]
     Active Substance: LIOTHYRONINE
     Dosage: 2 DF, QD
     Route: 065
  7. LEVOTHYROXINE. [Concomitant]
     Active Substance: LEVOTHYROXINE
     Dosage: UNK
     Route: 065
  8. SINGULAIR [Concomitant]
     Active Substance: MONTELUKAST SODIUM
     Dosage: UNK
     Route: 045
  9. ACETYLCYSTEINE. [Concomitant]
     Active Substance: ACETYLCYSTEINE
     Dosage: UNK
     Route: 045
  10. ZYRTEC [Concomitant]
     Active Substance: CETIRIZINE HYDROCHLORIDE
     Indication: HYPERSENSITIVITY
     Dosage: UNK
     Route: 065

REACTIONS (10)
  - Joint dislocation [Unknown]
  - Condition aggravated [Unknown]
  - Pain [Unknown]
  - Hypogeusia [Unknown]
  - Sinusitis [Unknown]
  - Hyposmia [Not Recovered/Not Resolved]
  - Paranasal sinus discomfort [Unknown]
  - Pain in extremity [Recovered/Resolved]
  - Upper-airway cough syndrome [Unknown]
  - Arthralgia [Unknown]

NARRATIVE: CASE EVENT DATE: 2020
